FAERS Safety Report 4696670-3 (Version None)
Quarter: 2005Q2

REPORT INFORMATION
  Report Type: 
  Country: None (occurrence: None)
  Receive Date: 20050620
  Receipt Date: 20050323
  Transmission Date: 20051028
  Serious: No
  Sender: FDA-Public Use
  Company Number: US-YAMANOUCHI-YPA20050157

PATIENT
  Age: 65 Year
  Sex: Female
  Weight: 41.7309 kg

DRUGS (6)
  1. VESICARE [Suspect]
     Indication: MICTURITION DISORDER
     Dosage: 5 MG QD PO
     Route: 048
     Dates: start: 20050323, end: 20050323
  2. AVAPRO [Concomitant]
  3. PREMARIN [Concomitant]
  4. EXTRA STRENGTH TYLENOL [Concomitant]
  5. LESCOL [Concomitant]
  6. IBUPROFEN [Concomitant]

REACTIONS (1)
  - URINARY INCONTINENCE [None]
